FAERS Safety Report 11395438 (Version 2)
Quarter: 2015Q3

REPORT INFORMATION
  Report Type: Spontaneous
  Country: JP (occurrence: JP)
  Receive Date: 20150819
  Receipt Date: 20150904
  Transmission Date: 20151125
  Serious: Yes (Hospitalization)
  Sender: FDA-Public Use
  Company Number: JP-BAYER-2015-400633

PATIENT
  Age: 40 Year
  Sex: Female

DRUGS (1)
  1. LORATADINE. [Suspect]
     Active Substance: LORATADINE
     Indication: URTICARIA
     Dosage: 10 MG, PER DAY, ALSO REPORTED AS: DIVIDED DOSE FREQUENCY UNKNOWN
     Route: 048

REACTIONS (3)
  - Hepatic function abnormal [Unknown]
  - Jaundice [Unknown]
  - Rash [Unknown]

NARRATIVE: CASE EVENT DATE: 20150810
